FAERS Safety Report 19736004 (Version 6)
Quarter: 2022Q1

REPORT INFORMATION
  Report Type: Report from Study
  Country: CO (occurrence: CO)
  Receive Date: 20210823
  Receipt Date: 20220214
  Transmission Date: 20220424
  Serious: Yes (Death, Hospitalization, Other)
  Sender: FDA-Public Use
  Company Number: NVSC2021CO173933

PATIENT
  Age: 59 Year
  Sex: Female
  Weight: 89 kg

DRUGS (3)
  1. AFINITOR [Suspect]
     Active Substance: EVEROLIMUS
     Indication: Breast cancer
     Dosage: 10 MG, QD
     Route: 048
     Dates: start: 202105
  2. AFINITOR [Suspect]
     Active Substance: EVEROLIMUS
     Dosage: 10 MG, QD (4 YEARS AGO)
     Route: 048
  3. EXEMESTANE [Concomitant]
     Active Substance: EXEMESTANE
     Indication: Breast cancer
     Dosage: 5 MG, QD
     Route: 048
     Dates: start: 202105

REACTIONS (14)
  - Death [Fatal]
  - Illness [Unknown]
  - Asthenia [Unknown]
  - Weight decreased [Unknown]
  - Hepatitis [Recovering/Resolving]
  - Movement disorder [Unknown]
  - Aspartate aminotransferase increased [Unknown]
  - Alanine aminotransferase increased [Unknown]
  - Transaminases increased [Unknown]
  - Decreased appetite [Unknown]
  - Eating disorder [Unknown]
  - Alopecia [Recovering/Resolving]
  - Cough [Not Recovered/Not Resolved]
  - Epistaxis [Unknown]

NARRATIVE: CASE EVENT DATE: 20210701
